FAERS Safety Report 8833336 (Version 1)
Quarter: 2012Q4

REPORT INFORMATION
  Report Type: 
  Country: RO (occurrence: RO)
  Receive Date: 20121010
  Receipt Date: 20121010
  Transmission Date: 20130627
  Serious: Yes (Other)
  Sender: FDA-Public Use
  Company Number: RO-ROCHE-1142255

PATIENT
  Age: 59 Year
  Sex: Female

DRUGS (2)
  1. BEVACIZUMAB [Suspect]
     Indication: BREAST CANCER METASTATIC
     Route: 065
     Dates: start: 2011
  2. PACLITAXEL [Suspect]
     Indication: BREAST CANCER METASTATIC
     Route: 065
     Dates: start: 2011

REACTIONS (4)
  - Haematotoxicity [Unknown]
  - Gastrointestinal toxicity [Unknown]
  - Peripheral sensorimotor neuropathy [Unknown]
  - Hypertension [Unknown]
